FAERS Safety Report 14142736 (Version 1)
Quarter: 2017Q4

REPORT INFORMATION
  Report Type: Spontaneous
  Country: US (occurrence: US)
  Receive Date: 20171030
  Receipt Date: 20171030
  Transmission Date: 20180321
  Serious: No
  Sender: FDA-Public Use
  Company Number: US-ASTRAZENECA-2017SF09786

PATIENT
  Age: 843 Month
  Sex: Female
  Weight: 88.5 kg

DRUGS (1)
  1. BYDUREON [Suspect]
     Active Substance: EXENATIDE
     Indication: TYPE 2 DIABETES MELLITUS
     Route: 058
     Dates: start: 201705

REACTIONS (2)
  - Wrong technique in product usage process [Unknown]
  - Weight decreased [Unknown]

NARRATIVE: CASE EVENT DATE: 201706
